FAERS Safety Report 6182991-4 (Version None)
Quarter: 2009Q2

REPORT INFORMATION
  Report Type: 
  Country: None (occurrence: None)
  Receive Date: 20090507
  Receipt Date: 20090428
  Transmission Date: 20091009
  Serious: Yes (Other)
  Sender: FDA-Public Use
  Company Number: PHHY2009VE15670

PATIENT
  Sex: Female

DRUGS (9)
  1. ACLASTA [Suspect]
     Dosage: 5MG/ANNUAL
     Route: 042
     Dates: start: 20090403
  2. DIOVAN HCT [Concomitant]
     Indication: HYPERTENSION
     Dosage: 1 DF, QD
     Route: 048
  3. DAFLON (DIOSMIN/HESPERIDIN) [Concomitant]
     Indication: PROMOTION OF PERIPHERAL CIRCULATION
     Dosage: 1 DF, BID
     Route: 048
  4. CALCIBON (CALCIUM CITRATE) [Concomitant]
     Indication: OSTEOPOROSIS
     Dosage: 1 DF, QD
     Route: 048
  5. BLOKIUM [Concomitant]
     Indication: HYPERTENSION
     Dosage: 1 DF, QD
     Route: 048
  6. GLUCOSAMINE [Concomitant]
     Dosage: 1 DF, QD
     Route: 048
  7. OMEPRAZOLE [Concomitant]
     Dosage: 1 DF, QD
     Route: 048
  8. THYROID HORMONES [Concomitant]
     Dosage: 1 DF, QD
     Route: 048
  9. RADIOACTIVE IODINE TREATMENT [Concomitant]
     Indication: HYPERTHYROIDISM
     Dosage: UNK

REACTIONS (6)
  - ABASIA [None]
  - CHILLS [None]
  - DIPLOPIA [None]
  - PYREXIA [None]
  - VERTIGO [None]
  - VESTIBULAR DISORDER [None]
